FAERS Safety Report 10064301 (Version 1)
Quarter: 2013Q4

REPORT INFORMATION
  Report Type: Spontaneous
  Country: FR (occurrence: None)
  Receive Date: 20131021
  Receipt Date: 20131021
  Transmission Date: 20140711
  Serious: Yes (Hospitalization)
  Sender: FDA-Public Use
  Company Number: 223498LEO

PATIENT
  Age: 23 Year
  Sex: Male

DRUGS (1)
  1. DAIVOBET OINTMENT (DAIVOBET) [Suspect]
     Indication: PSORIASIS
     Dosage: 2 TUBES PER WEEK
     Route: 061
     Dates: start: 201302, end: 20130828

REACTIONS (5)
  - Cushing^s syndrome [None]
  - Skin striae [None]
  - Skin discolouration [None]
  - Erythema [None]
  - Incorrect drug administration duration [None]
